FAERS Safety Report 10945192 (Version 1)
Quarter: 2015Q1

REPORT INFORMATION
  Report Type: Spontaneous
  Country: FR (occurrence: None)
  Receive Date: 20150318
  Receipt Date: 20150318
  Transmission Date: 20150721
  Serious: Yes (Hospitalization)
  Sender: FDA-Public Use
  Company Number: 20150723

PATIENT
  Sex: Female

DRUGS (3)
  1. METHOTREXATE (METHOTREXATE) [Suspect]
     Active Substance: METHOTREXATE
     Indication: PRODUCT USE ISSUE
     Route: 030
  2. METHOTREXATE (METHOTREXATE) [Suspect]
     Active Substance: METHOTREXATE
     Indication: ECTOPIC PREGNANCY
     Route: 030
  3. METHOTREXATE (METHOTREXATE) [Suspect]
     Active Substance: METHOTREXATE
     Indication: ECTOPIC PREGNANCY TERMINATION
     Route: 030

REACTIONS (2)
  - Maternal exposure during pregnancy [None]
  - Haemorrhage [None]
